FAERS Safety Report 7622647-1 (Version None)
Quarter: 2011Q3

REPORT INFORMATION
  Report Type: 
  Country: None (occurrence: None)
  Receive Date: 20110712
  Receipt Date: 20110627
  Transmission Date: 20111222
  Serious: Yes (Hospitalization)
  Sender: FDA-Public Use
  Company Number: 2011MA008124

PATIENT
  Age: 59 Year
  Sex: Male
  Weight: 74 kg

DRUGS (2)
  1. SIMVASTATIN [Concomitant]
  2. DILTIAZEM HCL [Suspect]
     Indication: ANGINA PECTORIS
     Dosage: 60 MG;BID;PO
     Route: 048

REACTIONS (3)
  - HYPOTHYROIDISM [None]
  - RHABDOMYOLYSIS [None]
  - EYELID OEDEMA [None]
